FAERS Safety Report 18687376 (Version 2)
Quarter: 2021Q1

REPORT INFORMATION
  Report Type: Spontaneous
  Country: US (occurrence: US)
  Receive Date: 20201231
  Receipt Date: 20210302
  Transmission Date: 20210419
  Serious: No
  Sender: FDA-Public Use
  Company Number: US-TAKEDA-2020TUS060586

PATIENT
  Sex: Female
  Weight: 80.73 kg

DRUGS (12)
  1. CUVITRU [Suspect]
     Active Substance: HUMAN IMMUNOGLOBULIN G
     Dosage: 200 MILLIGRAM/KILOGRAM, 1/WEEK
     Route: 058
     Dates: start: 20201202
  2. ESTRADIOL. [Concomitant]
     Active Substance: ESTRADIOL
  3. AMLODIPINE BESYLATE. [Concomitant]
     Active Substance: AMLODIPINE BESYLATE
  4. IBUPROFEN. [Concomitant]
     Active Substance: IBUPROFEN
  5. DIPHENHYDRAMINE. [Concomitant]
     Active Substance: DIPHENHYDRAMINE
  6. LYRICA [Concomitant]
     Active Substance: PREGABALIN
  7. CLARITIN [CLARITHROMYCIN] [Concomitant]
     Active Substance: CLARITHROMYCIN
  8. ACETAMINOPHEN. [Concomitant]
     Active Substance: ACETAMINOPHEN
  9. EPINEPHRINE. [Concomitant]
     Active Substance: EPINEPHRINE
  10. SYNTHROID [Concomitant]
     Active Substance: LEVOTHYROXINE SODIUM
  11. CUVITRU [Suspect]
     Active Substance: HUMAN IMMUNOGLOBULIN G
     Indication: CHRONIC INFLAMMATORY DEMYELINATING POLYRADICULONEUROPATHY
     Dosage: 16 GRAM, 1/WEEK
     Route: 058
     Dates: start: 20201202
  12. NORCO [Concomitant]
     Active Substance: ACETAMINOPHEN\HYDROCODONE BITARTRATE

REACTIONS (4)
  - Blood pressure increased [Unknown]
  - Headache [Unknown]
  - Nausea [Unknown]
  - Infusion related reaction [Unknown]
